FAERS Safety Report 5700233-8 (Version None)
Quarter: 2008Q2

REPORT INFORMATION
  Report Type: 
  Country: None (occurrence: None)
  Receive Date: 20080410
  Receipt Date: 20080328
  Transmission Date: 20081010
  Serious: Yes (Life-Threatening)
  Sender: FDA-Public Use
  Company Number: GB-ELI_LILLY_AND_COMPANY-GB200803006491

PATIENT
  Age: 15 Year
  Sex: Male
  Weight: 40 kg

DRUGS (1)
  1. STRATTERA [Suspect]
     Indication: ATTENTION DEFICIT/HYPERACTIVITY DISORDER
     Dosage: 50 MG, DAILY (1/D)
     Route: 048
     Dates: start: 20040401, end: 20080308

REACTIONS (5)
  - MALAISE [None]
  - POLYDIPSIA [None]
  - SOMNOLENCE [None]
  - TYPE 1 DIABETES MELLITUS [None]
  - VOMITING [None]
